FAERS Safety Report 7101693 (Version 23)
Quarter: 2013Q4

REPORT INFORMATION
  Report Type: Spontaneous
  Country: US (occurrence: US)
  Receive Date: 20090831
  Receipt Date: 20131024
  Transmission Date: 20140711
  Serious: Yes (Other)
  Sender: FDA-Public Use
  Company Number: US-CELGENEUS-163-20785-08010438

PATIENT
  Age: 35 Year
  Sex: Female

DRUGS (7)
  1. THALOMID [Suspect]
     Indication: PLASMA CELL MYELOMA
     Dosage: 100 MILLIGRAM
     Route: 048
     Dates: start: 200610
  2. THALOMID [Suspect]
     Dosage: 200 MILLIGRAM
     Route: 048
     Dates: start: 200611
  3. THALOMID [Suspect]
     Dosage: 150-200MG
     Route: 048
     Dates: start: 200707
  4. THALOMID [Suspect]
     Dosage: 100 MILLIGRAM
     Route: 048
     Dates: start: 200809, end: 2009
  5. THALOMID [Suspect]
     Dosage: 50-100MG
     Route: 048
     Dates: start: 200911, end: 20110422
  6. THALOMID [Suspect]
     Dosage: 100 MILLIGRAM
     Route: 048
     Dates: start: 201106
  7. THALOMID [Suspect]
     Dosage: 200 MILLIGRAM
     Route: 048

REACTIONS (1)
  - Human chorionic gonadotropin increased [Unknown]
